FAERS Safety Report 7508047-3 (Version None)
Quarter: 2011Q2

REPORT INFORMATION
  Report Type: 
  Country: None (occurrence: None)
  Receive Date: 20110527
  Receipt Date: 20110510
  Transmission Date: 20111010
  Serious: No
  Sender: FDA-Public Use
  Company Number: US-B.I. PHARMACEUTICALS,INC./RIDGEFIELD-2011-BP-06020BP

PATIENT
  Age: 15 Year
  Sex: Female

DRUGS (2)
  1. CATAPRES-TTS-1 [Suspect]
     Indication: HYPERTENSION
     Dosage: 1 MG
     Route: 061
     Dates: start: 20081104
  2. CATAPRES-TTS-1 [Suspect]
     Indication: ABNORMAL BEHAVIOUR

REACTIONS (4)
  - HALLUCINATION, AUDITORY [None]
  - WEIGHT DECREASED [None]
  - HALLUCINATION [None]
  - HALLUCINATION, VISUAL [None]
